FAERS Safety Report 15116723 (Version 5)
Quarter: 2018Q4

REPORT INFORMATION
  Report Type: Report from Study
  Country: US (occurrence: US)
  Receive Date: 20180706
  Receipt Date: 20181119
  Transmission Date: 20190204
  Serious: Yes (Hospitalization, Other)
  Sender: FDA-Public Use
  Company Number: US-GILEAD-2018-0348709

PATIENT
  Age: 70 Year
  Sex: Female

DRUGS (3)
  1. AMBRISENTAN [Suspect]
     Active Substance: AMBRISENTAN
     Indication: PRODUCT USED FOR UNKNOWN INDICATION
     Dosage: 10 MG, QD
     Route: 065
     Dates: start: 20121001
  2. REVATIO [Concomitant]
     Active Substance: SILDENAFIL CITRATE
  3. UPTRAVI [Concomitant]
     Active Substance: SELEXIPAG

REACTIONS (14)
  - Blood potassium decreased [Unknown]
  - Oedema peripheral [Unknown]
  - Bone pain [Unknown]
  - Plasma cell myeloma [Not Recovered/Not Resolved]
  - Blood potassium increased [Unknown]
  - Facial bones fracture [Not Recovered/Not Resolved]
  - Dyspnoea exertional [Unknown]
  - Fall [Unknown]
  - Fluid retention [Not Recovered/Not Resolved]
  - Intra-abdominal fluid collection [Unknown]
  - Abdominal pain upper [Unknown]
  - Radius fracture [Not Recovered/Not Resolved]
  - Haemoglobin decreased [Unknown]
  - Fluid retention [Unknown]

NARRATIVE: CASE EVENT DATE: 20180918
